FAERS Safety Report 8241856-4 (Version None)
Quarter: 2012Q1

REPORT INFORMATION
  Report Type: 
  Country: None (occurrence: None)
  Receive Date: 20120328
  Receipt Date: 20120314
  Transmission Date: 20120608
  Serious: Yes (Life-Threatening, Hospitalization, Other)
  Sender: FDA-Public Use
  Company Number: US-MYLANLABS-2012S1006334

PATIENT
  Sex: Male

DRUGS (43)
  1. MUCINEX [Concomitant]
  2. DILTIAZEM [Concomitant]
  3. NOREL DM /00417201/ [Concomitant]
  4. XOPENEX [Concomitant]
  5. MESTINON [Concomitant]
  6. POTASSIUM [Concomitant]
  7. ROZEREM [Concomitant]
  8. TYLENOL [Concomitant]
  9. LOVENOX [Concomitant]
  10. BIAXIN [Concomitant]
  11. PYRIDOSTIGMINE BROMIDE [Concomitant]
  12. ZANTAC [Concomitant]
  13. DIGOXIN [Suspect]
     Dates: start: 20070131, end: 20090915
  14. LANTUS [Concomitant]
  15. NORVASC [Concomitant]
  16. HYDRALAZINE HCL [Concomitant]
  17. ZESTRIL [Concomitant]
  18. CARDIZEM [Concomitant]
  19. QUINAPRIL [Concomitant]
  20. MYCOSTATIN [Concomitant]
  21. RESTORIL [Concomitant]
  22. LABETALOL HCL [Concomitant]
  23. CIPROFLOXACIN [Concomitant]
  24. LOPRESSOR [Concomitant]
  25. WARFARIN SODIUM [Concomitant]
  26. ASPIRIN [Concomitant]
  27. LOPID [Concomitant]
  28. CELEBREX [Concomitant]
  29. LASIX [Concomitant]
  30. ANASPAZ [Concomitant]
  31. TOPROL-XL [Concomitant]
  32. ATENOLOL [Concomitant]
  33. MOBIC [Concomitant]
  34. VICODIN [Concomitant]
  35. LACTINEX /00203201/ [Concomitant]
  36. ALTACE [Concomitant]
  37. PHENERGAN HCL [Concomitant]
  38. LEVOPHED [Concomitant]
  39. NOVOLOG [Concomitant]
  40. NEOSPORIN /00038301/ [Concomitant]
  41. GLUTAMINE [Concomitant]
  42. DULCOLAX [Concomitant]
  43. MYLANTA [Concomitant]

REACTIONS (86)
  - CHEST PAIN [None]
  - ANAEMIA [None]
  - ATELECTASIS [None]
  - HAEMOGLOBIN DECREASED [None]
  - PNEUMONIA [None]
  - RENAL FAILURE ACUTE [None]
  - BACK PAIN [None]
  - CATHETERISATION CARDIAC ABNORMAL [None]
  - CONFUSIONAL STATE [None]
  - DIARRHOEA [None]
  - DRY MOUTH [None]
  - GASTROINTESTINAL SOUNDS ABNORMAL [None]
  - GRIP STRENGTH DECREASED [None]
  - HAEMATURIA [None]
  - INTERNATIONAL NORMALISED RATIO INCREASED [None]
  - MALAISE [None]
  - SACROILIITIS [None]
  - SCIATICA [None]
  - CARDIAC FAILURE CONGESTIVE [None]
  - RETROPERITONEAL HAEMORRHAGE [None]
  - HEPATIC STEATOSIS [None]
  - CARDIAC MURMUR [None]
  - COORDINATION ABNORMAL [None]
  - HYPERHIDROSIS [None]
  - LEFT VENTRICULAR HYPERTROPHY [None]
  - MUSCLE SPASMS [None]
  - RALES [None]
  - RHONCHI [None]
  - VOMITING [None]
  - DEEP VEIN THROMBOSIS [None]
  - SHOCK HAEMORRHAGIC [None]
  - ABDOMINAL PAIN LOWER [None]
  - ABDOMINAL TENDERNESS [None]
  - ESSENTIAL HYPERTENSION [None]
  - FATIGUE [None]
  - INCREASED TENDENCY TO BRUISE [None]
  - MALNUTRITION [None]
  - RENAL CYST [None]
  - MITRAL VALVE INCOMPETENCE [None]
  - ABDOMINAL MASS [None]
  - GASTROINTESTINAL TUBE INSERTION [None]
  - MUSCULAR WEAKNESS [None]
  - DYSPNOEA EXERTIONAL [None]
  - RESPIRATORY FAILURE [None]
  - PLEURAL EFFUSION [None]
  - VENTRICULAR TACHYCARDIA [None]
  - BUNDLE BRANCH BLOCK LEFT [None]
  - GAIT DISTURBANCE [None]
  - LABORATORY TEST ABNORMAL [None]
  - SKIN LESION [None]
  - ULTRASOUND KIDNEY ABNORMAL [None]
  - TOXICITY TO VARIOUS AGENTS [None]
  - RETROPERITONEAL HAEMATOMA [None]
  - TRANSIENT ISCHAEMIC ATTACK [None]
  - BACK INJURY [None]
  - BLOOD PRODUCT TRANSFUSION [None]
  - BRADYCARDIA [None]
  - CARDIAC STRESS TEST ABNORMAL [None]
  - DIVERTICULUM [None]
  - MUSCULOSKELETAL PAIN [None]
  - TACHYCARDIA [None]
  - ENDOTRACHEAL INTUBATION [None]
  - AORTIC ANEURYSM [None]
  - HYDRONEPHROSIS [None]
  - HYPOTENSION [None]
  - ASTHENIA [None]
  - CAROTID BRUIT [None]
  - CHEST DISCOMFORT [None]
  - ELECTROCARDIOGRAM ABNORMAL [None]
  - HAEMATOCRIT DECREASED [None]
  - PALLOR [None]
  - POLLAKIURIA [None]
  - RENAL ARTERY STENOSIS [None]
  - ATRIAL FIBRILLATION [None]
  - MYASTHENIA GRAVIS [None]
  - MYASTHENIA GRAVIS CRISIS [None]
  - SKIN CANCER [None]
  - ANTICOAGULATION DRUG LEVEL ABOVE THERAPEUTIC [None]
  - DYSARTHRIA [None]
  - DYSPNOEA [None]
  - ECHOCARDIOGRAM ABNORMAL [None]
  - HEART RATE IRREGULAR [None]
  - NAUSEA [None]
  - OXYGEN SATURATION DECREASED [None]
  - PAIN IN EXTREMITY [None]
  - PUPILLARY REFLEX IMPAIRED [None]
